FAERS Safety Report 7774659-5 (Version None)
Quarter: 2011Q3

REPORT INFORMATION
  Report Type: 
  Country: None (occurrence: None)
  Receive Date: 20110923
  Receipt Date: 20110916
  Transmission Date: 20111222
  Serious: Yes (Hospitalization, Other)
  Sender: FDA-Public Use
  Company Number: FR-PFIZER INC-2011222479

PATIENT
  Age: 37 Year
  Sex: Female

DRUGS (9)
  1. XANAX [Suspect]
     Dosage: 80 DF, UNK
     Dates: start: 20110121
  2. CHLORPROMAZINE HCL [Concomitant]
     Dosage: 100 MG, 3X/DAY
     Dates: start: 20101213, end: 20110106
  3. STABLON [Concomitant]
     Dosage: UNK
     Dates: start: 20110121, end: 20110121
  4. XANAX [Suspect]
     Dosage: 1 G, 3X/DAY
     Dates: start: 20101103, end: 20110511
  5. CHLORPROMAZINE HCL [Concomitant]
     Dosage: 25 MG, 3X/DAY
     Dates: start: 20100104
  6. XANAX [Suspect]
     Dosage: 12 DF, UNK
     Dates: start: 20101102
  7. XANAX [Suspect]
     Dosage: 30 DF, UNK
     Dates: start: 20101228
  8. METHADONE [Suspect]
     Dosage: 20 MG, 1X/DAY
     Dates: start: 20090101, end: 20110511
  9. NOZINAN [Concomitant]
     Dosage: 100 MG, 4X/DAY
     Dates: start: 20101103, end: 20101213

REACTIONS (3)
  - BLOOD THYROID STIMULATING HORMONE DECREASED [None]
  - MULTIPLE DRUG OVERDOSE INTENTIONAL [None]
  - MENTAL DISORDER [None]
